FAERS Safety Report 8888988 (Version 1)
Quarter: 2012Q4

REPORT INFORMATION
  Report Type: 
  Country: US (occurrence: US)
  Receive Date: 20121106
  Receipt Date: 20121106
  Transmission Date: 20130627
  Serious: Yes (Other)
  Sender: FDA-Public Use
  Company Number: US-VERTEX PHARMACEUTICAL INC.-AE-2012-009355

PATIENT
  Sex: Male
  Weight: 91.61 kg

DRUGS (6)
  1. INCIVEK [Suspect]
     Indication: HEPATITIS C
     Dosage: 750 mg, tid
     Route: 048
     Dates: start: 20120322, end: 20120614
  2. PEGYLATED INTERFERON [Suspect]
     Indication: HEPATITIS C
     Dosage: 180 mg, qw
     Dates: start: 20120322, end: 20120622
  3. RIBAVIRIN [Suspect]
     Indication: HEPATITIS C
     Dosage: 600 mg, bid
     Dates: start: 20120322, end: 20120628
  4. ENALAPRIL [Concomitant]
     Indication: HYPERTENSION
     Dosage: 5 mg, qd
  5. ZOLPIDEM [Concomitant]
     Dosage: 10 mg, bedtime
  6. OMEPRAZOLE [Concomitant]
     Indication: GASTROOESOPHAGEAL REFLUX DISEASE
     Dosage: 20 mg, q AM

REACTIONS (1)
  - Drug reaction with eosinophilia and systemic symptoms [Unknown]
